FAERS Safety Report 5166116-X (Version None)
Quarter: 2006Q4

REPORT INFORMATION
  Report Type: 
  Country: None (occurrence: None)
  Receive Date: 20061129
  Receipt Date: 20061114
  Transmission Date: 20070319
  Serious: Yes (Hospitalization)
  Sender: FDA-Public Use
  Company Number: APP200600304

PATIENT
  Age: 72 Year
  Sex: Female

DRUGS (11)
  1. FLUOROURACIL [Suspect]
     Indication: OESOPHAGEAL CARCINOMA
     Dosage: 500 MG (500 MG, MONDAY THRU FRIDAY), INTRAVENOUS
     Route: 042
     Dates: start: 20060905, end: 20060908
  2. FLUOROURACIL [Suspect]
     Indication: OESOPHAGEAL CARCINOMA
     Dosage: 500 MG (500 MG, MONDAY THRU FRIDAY), INTRAVENOUS
     Route: 042
     Dates: start: 20060911, end: 20060915
  3. FLUOROURACIL [Suspect]
     Indication: OESOPHAGEAL CARCINOMA
     Dosage: 500 MG (500 MG, MONDAY THRU FRIDAY), INTRAVENOUS
     Route: 042
     Dates: start: 20060918, end: 20060925
  4. FLUOROURACIL [Suspect]
     Indication: OESOPHAGEAL CARCINOMA
     Dosage: 500 MG (500 MG, MONDAY THRU FRIDAY), INTRAVENOUS
     Route: 042
     Dates: start: 20060925, end: 20060929
  5. FLUOROURACIL [Suspect]
     Indication: OESOPHAGEAL CARCINOMA
     Dosage: 500 MG (500 MG, MONDAY THRU FRIDAY), INTRAVENOUS
     Route: 042
     Dates: start: 20061002, end: 20061006
  6. FLUOROURACIL [Suspect]
  7. OXALIPLATIN [Suspect]
     Indication: OESOPHAGEAL CARCINOMA
     Dosage: 11.4286 MG (80 MG, 1 IN 1 WK), INTRAVENOUS
     Route: 042
     Dates: start: 20060905, end: 20060905
  8. OXALIPLATIN [Suspect]
     Indication: OESOPHAGEAL CARCINOMA
     Dosage: 11.4286 MG (80 MG, 1 IN 1 WK), INTRAVENOUS
     Route: 042
     Dates: start: 20060911, end: 20060911
  9. OXALIPLATIN [Suspect]
     Indication: OESOPHAGEAL CARCINOMA
     Dosage: 11.4286 MG (80 MG, 1 IN 1 WK), INTRAVENOUS
     Route: 042
     Dates: start: 20060918, end: 20060918
  10. OXALIPLATIN [Suspect]
     Indication: OESOPHAGEAL CARCINOMA
     Dosage: 11.4286 MG (80 MG, 1 IN 1 WK), INTRAVENOUS
     Route: 042
     Dates: start: 20060925, end: 20060925
  11. OXALIPLATIN [Suspect]
     Indication: OESOPHAGEAL CARCINOMA
     Dosage: 11.4286 MG (80 MG, 1 IN 1 WK), INTRAVENOUS
     Route: 042
     Dates: start: 20061002, end: 20061002

REACTIONS (7)
  - ATRIAL FIBRILLATION [None]
  - BLOOD GLUCOSE INCREASED [None]
  - LYMPHOCYTE PERCENTAGE DECREASED [None]
  - MEAN PLATELET VOLUME DECREASED [None]
  - MONOCYTE PERCENTAGE INCREASED [None]
  - RED CELL DISTRIBUTION WIDTH INCREASED [None]
  - SYNCOPE [None]
